FAERS Safety Report 20529669 (Version 1)
Quarter: 2022Q1

REPORT INFORMATION
  Report Type: Report from Study
  Country: JP (occurrence: JP)
  Receive Date: 20220301
  Receipt Date: 20220301
  Transmission Date: 20220423
  Serious: Yes (Hospitalization)
  Sender: FDA-Public Use
  Company Number: JP-ABBVIE-20K-087-3309898-00

PATIENT
  Age: 72 Year
  Sex: Male

DRUGS (2)
  1. CARBIDOPA\LEVODOPA [Suspect]
     Active Substance: CARBIDOPA\LEVODOPA
     Indication: Parkinson^s disease
     Route: 050
     Dates: start: 20200218
  2. CARBIDOPA\LEVODOPA [Suspect]
     Active Substance: CARBIDOPA\LEVODOPA

REACTIONS (9)
  - Cerebral haemorrhage [Recovering/Resolving]
  - Hypophagia [Unknown]
  - Dermatitis contact [Unknown]
  - Dysphonia [Unknown]
  - Stoma site extravasation [Unknown]
  - Stoma site discharge [Unknown]
  - Dyskinesia [Unknown]
  - Fall [Unknown]
  - Urinary retention [Unknown]

NARRATIVE: CASE EVENT DATE: 20200303
